FAERS Safety Report 8664344 (Version 3)
Quarter: 2012Q4

REPORT INFORMATION
  Report Type: 
  Country: US (occurrence: US)
  Receive Date: 20120713
  Receipt Date: 20120919
  Transmission Date: 20130627
  Serious: Yes (Other)
  Sender: FDA-Public Use
  Company Number: US-PFIZER INC-2012165581

PATIENT
  Age: 23 Year
  Sex: Female
  Weight: 90.7 kg

DRUGS (4)
  1. LYRICA [Suspect]
     Indication: FIBROMYALGIA
     Dosage: UNK
     Dates: start: 2009
  2. LYRICA [Suspect]
     Dosage: 150 mg, 2x/day
  3. PAROXETINE [Concomitant]
     Indication: DEPRESSION
     Dosage: UNK
  4. PAROXETINE [Concomitant]
     Indication: ANXIETY

REACTIONS (1)
  - Bipolar disorder [Not Recovered/Not Resolved]
